FAERS Safety Report 24451098 (Version 2)
Quarter: 2024Q4

REPORT INFORMATION
  Report Type: Spontaneous
  Country: JP (occurrence: JP)
  Receive Date: 20241017
  Receipt Date: 20241025
  Transmission Date: 20250115
  Serious: Yes (Life-Threatening, Other)
  Sender: PFIZER
  Company Number: JP-PFIZER INC-PV202400133790

PATIENT
  Age: 63 Year
  Sex: Female

DRUGS (6)
  1. DOCETAXEL [Suspect]
     Active Substance: DOCETAXEL
     Indication: Bone cancer
     Dosage: 60 MG/M? (DAY 1) (CYCLE 1 )
  2. CISPLATIN [Suspect]
     Active Substance: CISPLATIN
     Indication: Bone cancer
     Dosage: 60 MG/M? (DAY 2), CYCLIC (CYCLE 1 )
  3. FLUOROURACIL [Suspect]
     Active Substance: FLUOROURACIL
     Indication: Bone cancer
     Dosage: 150 MG/M? (DAYS 2-5),CYCLIC (CYCLE 1 )
  4. PERPHENAZINE DIMALEATE [Concomitant]
     Active Substance: PERPHENAZINE DIMALEATE
     Indication: Schizophrenia
  5. HALOPERIDOL [Concomitant]
     Active Substance: HALOPERIDOL
     Indication: Schizophrenia
  6. CHLORPROMAZINE HYDROCHLORIDE [Concomitant]
     Active Substance: CHLORPROMAZINE HYDROCHLORIDE
     Indication: Schizophrenia

REACTIONS (2)
  - Intestinal ischaemia [Unknown]
  - Myelosuppression [Unknown]
